FAERS Safety Report 14947175 (Version 1)
Quarter: 2018Q2

REPORT INFORMATION
  Report Type: Spontaneous
  Country: ES (occurrence: ES)
  Receive Date: 20180529
  Receipt Date: 20180529
  Transmission Date: 20180711
  Serious: Yes (Hospitalization)
  Sender: FDA-Public Use
  Company Number: ES-JNJFOC-20180537353

PATIENT
  Age: 80 Year
  Sex: Female
  Weight: 83 kg

DRUGS (13)
  1. PROLIA [Concomitant]
     Active Substance: DENOSUMAB
     Route: 058
  2. DUROGESIC [Concomitant]
     Active Substance: FENTANYL
     Route: 062
  3. PREGABALINA [Concomitant]
     Active Substance: PREGABALIN
     Route: 048
  4. EUTIROX [Concomitant]
     Active Substance: LEVOTHYROXINE SODIUM
     Route: 048
  5. DORMODOR [Suspect]
     Active Substance: FLURAZEPAM HYDROCHLORIDE
     Indication: PRODUCT USED FOR UNKNOWN INDICATION
     Route: 048
     Dates: start: 2017, end: 20180311
  6. HIDROFEROL [Concomitant]
     Active Substance: CALCIFEDIOL
     Route: 048
  7. ALPRAZOLAM. [Concomitant]
     Active Substance: ALPRAZOLAM
     Route: 048
  8. METAMIZOLE [Concomitant]
     Active Substance: METAMIZOLE
     Route: 048
  9. CALCIO D ISDIN [Concomitant]
     Route: 065
  10. SIMVASTATIN. [Concomitant]
     Active Substance: SIMVASTATIN
     Route: 048
  11. TRAMADOL HYDROCHLORIDE. [Suspect]
     Active Substance: TRAMADOL HYDROCHLORIDE
     Indication: PRODUCT USED FOR UNKNOWN INDICATION
     Route: 048
     Dates: start: 2017, end: 20180328
  12. PARACETAMOL [Concomitant]
     Active Substance: ACETAMINOPHEN
     Route: 048
  13. OMEPRAZOLE. [Concomitant]
     Active Substance: OMEPRAZOLE
     Route: 048

REACTIONS (1)
  - Acute respiratory failure [Recovered/Resolved]

NARRATIVE: CASE EVENT DATE: 20180311
